FAERS Safety Report 21031561 (Version 1)
Quarter: 2022Q3

REPORT INFORMATION
  Report Type: Spontaneous
  Country: US (occurrence: US)
  Receive Date: 20220701
  Receipt Date: 20220701
  Transmission Date: 20221027
  Serious: No
  Sender: FDA-Public Use
  Company Number: US-LEO Pharma-343619

PATIENT
  Sex: Male

DRUGS (1)
  1. ADBRY [Suspect]
     Active Substance: TRALOKINUMAB-LDRM
     Indication: Eczema
     Dosage: 4 INJECTIONS FOR THE INITIAL DOSE ADMINISTERED IN THE BACK OF BOTH ARMS (2 INJECTIONS IN EACH ARM).
     Route: 058
     Dates: start: 20220613

REACTIONS (5)
  - Skin exfoliation [Not Recovered/Not Resolved]
  - Eye swelling [Unknown]
  - Skin exfoliation [Not Recovered/Not Resolved]
  - Pruritus [Not Recovered/Not Resolved]
  - Dry skin [Not Recovered/Not Resolved]
